FAERS Safety Report 6153805-3 (Version None)
Quarter: 2009Q2

REPORT INFORMATION
  Report Type: 
  Country: None (occurrence: None)
  Receive Date: 20090414
  Receipt Date: 20071112
  Transmission Date: 20091009
  Serious: Yes (Death)
  Sender: FDA-Public Use
  Company Number: US-ASTRAZENECA-2007UW21747

PATIENT
  Age: 11424 Day
  Sex: Male
  Weight: 142.4 kg

DRUGS (17)
  1. SEROQUEL [Suspect]
     Indication: SCHIZOPHRENIA
     Route: 048
     Dates: start: 19981211, end: 20041221
  2. SEROQUEL [Suspect]
     Indication: PSYCHOTIC DISORDER
     Route: 048
     Dates: start: 19981211, end: 20041221
  3. SEROQUEL [Suspect]
     Dosage: 100-600 MG
     Route: 048
     Dates: start: 19981211
  4. SEROQUEL [Suspect]
     Dosage: 100-600 MG
     Route: 048
     Dates: start: 19981211
  5. GLYBURIDE [Concomitant]
  6. GEODON [Concomitant]
  7. TESTOSTERONE CYPIONATE [Concomitant]
  8. PROTONIX [Concomitant]
  9. GLUCOPHAGE [Concomitant]
  10. LOPID [Concomitant]
  11. ASPIRIN [Concomitant]
  12. CELEXA [Concomitant]
  13. XENICAL [Concomitant]
  14. CLONOPIN [Concomitant]
  15. LAMISIL [Concomitant]
  16. NEXIUM [Concomitant]
  17. CLOTRIMAZOLE [Concomitant]

REACTIONS (22)
  - ARTHRALGIA [None]
  - CARDIOMEGALY [None]
  - CELLULITIS [None]
  - CHEST PAIN [None]
  - CONGESTIVE CARDIOMYOPATHY [None]
  - DEATH [None]
  - DYSPNOEA [None]
  - ERYTHEMA [None]
  - FATIGUE [None]
  - FUNGAL INFECTION [None]
  - HYPERHIDROSIS [None]
  - HYPOAESTHESIA [None]
  - MYALGIA [None]
  - OEDEMA PERIPHERAL [None]
  - PAIN IN EXTREMITY [None]
  - PULMONARY OEDEMA [None]
  - SCHIZOAFFECTIVE DISORDER [None]
  - SKIN LESION [None]
  - SKIN ULCER [None]
  - SKIN ULCER HAEMORRHAGE [None]
  - TYPE 2 DIABETES MELLITUS [None]
  - WEIGHT INCREASED [None]
